FAERS Safety Report 6383974-1 (Version None)
Quarter: 2009Q4

REPORT INFORMATION
  Report Type: 
  Country: None (occurrence: None)
  Receive Date: 20091001
  Receipt Date: 20090923
  Transmission Date: 20100525
  Serious: Yes (Hospitalization)
  Sender: FDA-Public Use
  Company Number: RU-ELI_LILLY_AND_COMPANY-RU200909005883

PATIENT
  Sex: Female

DRUGS (6)
  1. BYETTA [Suspect]
     Indication: TYPE 2 DIABETES MELLITUS
     Dosage: 5 MG, 2/D
     Route: 058
     Dates: start: 20080815, end: 20090901
  2. AMARYL [Concomitant]
     Indication: DIABETES MELLITUS
     Dosage: 6 MG, UNK
  3. GLUCOPHAGE [Concomitant]
     Indication: DIABETES MELLITUS
     Dosage: 1500 MG, DAILY (1/D)
  4. NOLICIN [Concomitant]
     Dosage: 400 MG, DAILY (1/D)
  5. TANAKAN [Concomitant]
     Dosage: 1 D/F, 2/D
  6. MEXIDOL [Concomitant]
     Dosage: 150 MG, 2/D
     Route: 048

REACTIONS (1)
  - HEPATITIS TOXIC [None]
